FAERS Safety Report 25299469 (Version 4)
Quarter: 2025Q4

REPORT INFORMATION
  Report Type: Spontaneous
  Country: JP (occurrence: JP)
  Receive Date: 20250512
  Receipt Date: 20251107
  Transmission Date: 20260117
  Serious: Yes (Life-Threatening, Hospitalization, Disabling, Other)
  Sender: ALEXION PHARMACEUTICALS
  Company Number: JP-ASTRAZENECA-250043980_010520_P_1

PATIENT
  Age: 58 Year
  Sex: Female
  Weight: 70 kg

DRUGS (9)
  1. FASLODEX [Suspect]
     Active Substance: FULVESTRANT
     Indication: Breast cancer female
     Dosage: DOSE UNKNOWN
  2. FASLODEX [Suspect]
     Active Substance: FULVESTRANT
     Dosage: DOSE UNKNOWN
  3. TRUQAP [Suspect]
     Active Substance: CAPIVASERTIB
     Indication: Breast cancer female
     Dosage: DOSE UNKNOWN, 4 CONSECUTIVE DAYS ADMINISTRATION, FOLLOWED BY 3 DAYS OFF
  4. TRUQAP [Suspect]
     Active Substance: CAPIVASERTIB
     Dosage: DOSE UNKNOWN, 4 CONSECUTIVE DAYS ADMINISTRATION, FOLLOWED BY 3 DAYS OFF
  5. DENOSUMAB [Concomitant]
     Active Substance: DENOSUMAB
     Dosage: EVERY 4~12 WEEKS
  6. CALCIUM CARBONATE\CHOLECALCIFEROL\MAGNESIUM CARBONATE [Concomitant]
     Active Substance: CALCIUM CARBONATE\CHOLECALCIFEROL\MAGNESIUM CARBONATE
     Dosage: 2 TABLETS ONCE/DAILY
     Dates: start: 20190226, end: 20250504
  7. METOCLOPRAMIDE [Concomitant]
     Active Substance: METOCLOPRAMIDE
     Dosage: WHEN IN QUEASY, AS REQUIRED
     Dates: start: 20250426, end: 20250429
  8. XYZAL [Concomitant]
     Active Substance: LEVOCETIRIZINE DIHYDROCHLORIDE
     Dosage: ONCE/DAILY
     Dates: start: 20250502, end: 20250504
  9. FAMOTIDINE [Concomitant]
     Active Substance: FAMOTIDINE
     Dosage: TWICE/DAILY
     Dates: start: 20250502, end: 20250504

REACTIONS (14)
  - Interstitial lung disease [Recovering/Resolving]
  - Acute respiratory distress syndrome [Unknown]
  - Steroid diabetes [Unknown]
  - Pulmonary toxicity [Unknown]
  - Faeces soft [Unknown]
  - Abdominal discomfort [Unknown]
  - Abdominal pain upper [Unknown]
  - Nausea [Unknown]
  - Decreased appetite [Unknown]
  - Oropharyngeal discomfort [Unknown]
  - Throat irritation [Unknown]
  - Oropharyngeal pain [Unknown]
  - Odynophagia [Unknown]
  - Pruritus [Unknown]

NARRATIVE: CASE EVENT DATE: 20250503
